FAERS Safety Report 15887199 (Version 3)
Quarter: 2025Q3

REPORT INFORMATION
  Report Type: Report from Study
  Country: EU (occurrence: EU)
  Receive Date: 20190130
  Receipt Date: 20250724
  Transmission Date: 20251021
  Serious: Yes (Death, Other)
  Sender: AUROBINDO
  Company Number: EU-AUROBINDO-AUR-APL-2019-003522

PATIENT
  Age: 74 Year
  Sex: Male

DRUGS (2)
  1. OLANZAPINE [Suspect]
     Active Substance: OLANZAPINE
     Indication: Product used for unknown indication
     Route: 048
  2. CITALOPRAM [Suspect]
     Active Substance: CITALOPRAM
     Indication: Product used for unknown indication
     Route: 065

REACTIONS (4)
  - Intentional overdose [Fatal]
  - Completed suicide [Fatal]
  - Toxicity to various agents [Fatal]
  - Poisoning [Fatal]
